FAERS Safety Report 5464423-4 (Version None)
Quarter: 2007Q3

REPORT INFORMATION
  Report Type: 
  Country: None (occurrence: None)
  Receive Date: 20070921
  Receipt Date: 20070911
  Transmission Date: 20080115
  Serious: Yes (Other)
  Sender: FDA-Public Use
  Company Number: BR-JNJFOC-20070902351

PATIENT
  Sex: Male

DRUGS (2)
  1. ASCARIDIL [Suspect]
     Route: 048
  2. ASCARIDIL [Suspect]
     Indication: DRUG USE FOR UNKNOWN INDICATION
     Route: 048

REACTIONS (5)
  - ANXIETY [None]
  - DYSPNOEA [None]
  - HALLUCINATION [None]
  - MALAISE [None]
  - PAROSMIA [None]
